FAERS Safety Report 16659280 (Version 2)
Quarter: 2019Q3

REPORT INFORMATION
  Report Type: Spontaneous
  Country: US (occurrence: US)
  Receive Date: 20190802
  Receipt Date: 20190910
  Transmission Date: 20191004
  Serious: No
  Sender: FDA-Public Use
  Company Number: US-CELGENEUS-USA-20190709719

PATIENT
  Age: 54 Year
  Sex: Female

DRUGS (5)
  1. OTEZLA [Suspect]
     Active Substance: APREMILAST
     Indication: BLISTER
  2. OTEZLA [Suspect]
     Active Substance: APREMILAST
     Indication: PRURITUS
  3. OTEZLA [Suspect]
     Active Substance: APREMILAST
     Indication: PSORIASIS
     Dosage: 60 MILLIGRAM
     Route: 048
     Dates: start: 201907
  4. OTEZLA [Suspect]
     Active Substance: APREMILAST
     Indication: GAIT INABILITY
  5. OTEZLA [Suspect]
     Active Substance: APREMILAST
     Indication: RASH

REACTIONS (4)
  - Blister [Recovered/Resolved]
  - Gait inability [Recovered/Resolved]
  - Rash [Recovered/Resolved]
  - Pruritus [Recovered/Resolved]

NARRATIVE: CASE EVENT DATE: 20190724
